FAERS Safety Report 9608948 (Version 1)
Quarter: 2013Q4

REPORT INFORMATION
  Report Type: Spontaneous
  Country: FR (occurrence: None)
  Receive Date: 20131007
  Receipt Date: 20131007
  Transmission Date: 20140711
  Serious: Yes (Hospitalization)
  Sender: FDA-Public Use
  Company Number: 1910102

PATIENT
  Age: 61 Year
  Sex: Female

DRUGS (3)
  1. CARBOPLATIN [Suspect]
     Indication: OVARIAN CANCER
     Dates: start: 20110830, end: 20110830
  2. PACLITAXEL (EBEWE) [Concomitant]
  3. POLARAMINE [Concomitant]

REACTIONS (4)
  - Asthenia [None]
  - Infusion related reaction [None]
  - Pallor [None]
  - Throat tightness [None]
